FAERS Safety Report 9476948 (Version 3)
Quarter: 2013Q4

REPORT INFORMATION
  Report Type: Report from Study
  Country: DE (occurrence: DE)
  Receive Date: 20130826
  Receipt Date: 20131001
  Transmission Date: 20140711
  Serious: Yes (Hospitalization)
  Sender: FDA-Public Use
  Company Number: DE-AMGEN-DEUCT2013059748

PATIENT
  Age: 64 Year
  Sex: Female

DRUGS (5)
  1. PANITUMUMAB [Suspect]
     Indication: OVARIAN CANCER RECURRENT
     Dosage: 9 MG/KG, UNK
     Route: 042
     Dates: start: 20130308, end: 20130802
  2. GEMCITABINE [Concomitant]
     Indication: OVARIAN CANCER RECURRENT
     Dosage: 1090 MG/M2, UNK
     Route: 042
     Dates: start: 20130308
  3. CARBOPLATIN [Concomitant]
     Indication: OVARIAN CANCER RECURRENT
     Dosage: UNK
     Route: 042
     Dates: start: 20130308
  4. HYDROCREAM BASE [Concomitant]
     Dosage: UNK UNK, QD
  5. HYDROCORTISONE [Concomitant]
     Dosage: UNK

REACTIONS (1)
  - Blepharitis [Recovered/Resolved]
